FAERS Safety Report 8231636-8 (Version None)
Quarter: 2012Q1

REPORT INFORMATION
  Report Type: 
  Country: None (occurrence: None)
  Receive Date: 20120323
  Receipt Date: 20120313
  Transmission Date: 20120608
  Serious: Yes (Death)
  Sender: FDA-Public Use
  Company Number: JP-ELI_LILLY_AND_COMPANY-JP201203001262

PATIENT
  Age: 83 Year
  Sex: Female

DRUGS (3)
  1. PREDNISOLONE [Concomitant]
  2. FORTEO [Suspect]
     Indication: OSTEOPOROSIS
     Dosage: UNK
     Route: 058
     Dates: start: 20120216, end: 20120226
  3. CELECOXIB [Concomitant]

REACTIONS (1)
  - DEATH [None]
